FAERS Safety Report 8303935-2 (Version None)
Quarter: 2012Q2

REPORT INFORMATION
  Report Type: 
  Country: None (occurrence: None)
  Receive Date: 20120423
  Receipt Date: 20120418
  Transmission Date: 20120825
  Serious: Yes (Hospitalization, Other)
  Sender: FDA-Public Use
  Company Number: PHHO2012IN004405

PATIENT
  Sex: Male
  Weight: 85 kg

DRUGS (14)
  1. PANTOPRAZOLE [Concomitant]
     Indication: PROPHYLAXIS
     Dosage: 40 MG, QD
     Route: 048
     Dates: start: 20120403
  2. PANTOPRAZOLE SODIUM [Concomitant]
     Indication: PROPHYLAXIS
     Dosage: 40 MG, QD
     Route: 048
     Dates: start: 20120303
  3. DILZEM [Concomitant]
     Indication: PROPHYLAXIS
     Dosage: 90 1/2 QD
     Route: 048
     Dates: start: 20120403
  4. NEORAL [Suspect]
     Indication: RENAL TRANSPLANT
     Dosage: 200 MG, BID
     Route: 048
     Dates: start: 20120227, end: 20120316
  5. SIMULECT [Suspect]
     Indication: RENAL TRANSPLANT
  6. PREDNISOLONE [Concomitant]
     Indication: PROPHYLAXIS
     Dosage: 20 MG, QD
     Route: 048
     Dates: start: 20120229
  7. MYFORTIC [Suspect]
     Indication: RENAL TRANSPLANT
     Dosage: 360 MG, TID
     Route: 048
     Dates: start: 20120227, end: 20120316
  8. MYFORTIC [Suspect]
     Dosage: 1440 MG, TID
     Route: 048
     Dates: start: 20120319
  9. RANTAC [Concomitant]
     Indication: ANTACID THERAPY
     Dosage: 150 MG, BID
     Route: 048
     Dates: start: 20120301
  10. SEPTRAN [Concomitant]
     Indication: PROPHYLAXIS
     Dosage: 480 MG, QD
     Route: 048
     Dates: start: 20120301
  11. ARKAMIN [Concomitant]
     Indication: HYPERTENSION
     Dosage: 100 MG, TID
     Route: 048
     Dates: start: 20120307
  12. NEORAL [Suspect]
     Dosage: 225 MG, BID
     Route: 048
     Dates: start: 20120319
  13. PRAZOSIN HCL [Concomitant]
     Indication: HYPERTENSION
     Dosage: 5 MG, BID
     Route: 048
     Dates: start: 20120307
  14. AMLONG [Concomitant]
     Indication: HYPERTENSION
     Dosage: 5 MG, BID
     Route: 048
     Dates: start: 20120313

REACTIONS (4)
  - KIDNEY TRANSPLANT REJECTION [None]
  - POST PROCEDURAL HAEMORRHAGE [None]
  - DEEP VEIN THROMBOSIS [None]
  - RENAL VEIN THROMBOSIS [None]
